FAERS Safety Report 12448695 (Version 1)
Quarter: 2016Q2

REPORT INFORMATION
  Report Type: Spontaneous
  Country: US (occurrence: US)
  Receive Date: 20160608
  Receipt Date: 20160608
  Transmission Date: 20160815
  Serious: No
  Sender: FDA-Public Use
  Company Number: US-DSJP-DSU-2016-113542

PATIENT
  Sex: Male

DRUGS (1)
  1. BENICAR [Suspect]
     Active Substance: OLMESARTAN MEDOXOMIL
     Indication: PRODUCT USED FOR UNKNOWN INDICATION
     Dosage: UNK

REACTIONS (7)
  - Bone fragmentation [Unknown]
  - Musculoskeletal discomfort [Unknown]
  - Muscle strain [Unknown]
  - Spinal cord compression [Unknown]
  - Pain [Unknown]
  - Hypoaesthesia [Unknown]
  - Bone disorder [Unknown]
